FAERS Safety Report 25464434 (Version 3)
Quarter: 2025Q3

REPORT INFORMATION
  Report Type: Spontaneous
  Country: CA (occurrence: CA)
  Receive Date: 20250621
  Receipt Date: 20250811
  Transmission Date: 20251020
  Serious: Yes (Other)
  Sender: BOEHRINGER INGELHEIM
  Company Number: CA-BoehringerIngelheim-2025-BI-077117

PATIENT
  Age: 34 Year
  Sex: Female

DRUGS (1)
  1. JARDIANCE [Suspect]
     Active Substance: EMPAGLIFLOZIN
     Indication: Type 2 diabetes mellitus
     Dates: start: 20250604, end: 20250613

REACTIONS (4)
  - Pancreatitis [Recovering/Resolving]
  - Multi-organ disorder [Recovered/Resolved]
  - Abdominal pain upper [Unknown]
  - Lipase increased [Unknown]
